FAERS Safety Report 5970838-8 (Version None)
Quarter: 2008Q4

REPORT INFORMATION
  Report Type: 
  Country: None (occurrence: None)
  Receive Date: 20081127
  Receipt Date: 20081118
  Transmission Date: 20090506
  Serious: No
  Sender: FDA-Public Use
  Company Number: US-JNJFOC-20081104603

PATIENT
  Sex: Female
  Weight: 58.06 kg

DRUGS (7)
  1. FENTANYL TRANSDERMAL SYSTEM [Suspect]
     Indication: ARTHRALGIA
     Route: 062
  2. MYLANTA [Suspect]
     Indication: ARTHRALGIA
     Route: 065
  3. ALBUTEROL [Concomitant]
     Indication: EMPHYSEMA
     Dosage: 0.09MG/SOLUTION/ 17G EVERY 10 HOURS/INHALATION
     Route: 055
  4. AMBIEN [Concomitant]
     Indication: INSOMNIA
     Dosage: EVERY NIGHT
     Route: 048
  5. NEURONTIN [Concomitant]
     Indication: NEURALGIA
     Dosage: ONE IN MORNING, ONE AT NIGHT
     Route: 048
  6. ZOLOFT [Concomitant]
     Indication: ANXIETY
     Dosage: ONE IN MORNING, ONE AT NIGHT
     Route: 048
  7. BENADRYL [Concomitant]

REACTIONS (3)
  - EXPIRED DRUG ADMINISTERED [None]
  - EYE SWELLING [None]
  - NASAL OEDEMA [None]
